FAERS Safety Report 4407996-2 (Version None)
Quarter: 2004Q3

REPORT INFORMATION
  Report Type: 
  Country: None (occurrence: None)
  Receive Date: 20040721
  Receipt Date: 20040705
  Transmission Date: 20050211
  Serious: Yes (Death)
  Sender: FDA-Public Use
  Company Number: JP_040703723

PATIENT
  Age: 31 Year
  Sex: Male
  Weight: 70 kg

DRUGS (5)
  1. ZYPREXA [Suspect]
     Indication: SCHIZOPHRENIA
     Dosage: 10 MG DAY
     Dates: start: 20040607
  2. FLUMEZIN (FLUPHENAZINE) [Suspect]
  3. CHLORPROMAZINE HCL [Concomitant]
  4. GOODMIN (BROTIZOLAM) [Concomitant]
  5. ROHIPNOL (FLUNOTRAZEPAM) [Concomitant]

REACTIONS (1)
  - COMPLETED SUICIDE [None]
